FAERS Safety Report 17386808 (Version 1)
Quarter: 2020Q1

REPORT INFORMATION
  Report Type: Spontaneous
  Country: PL (occurrence: PL)
  Receive Date: 20200206
  Receipt Date: 20200206
  Transmission Date: 20200409
  Serious: Yes (Hospitalization, Other)
  Sender: FDA-Public Use
  Company Number: PL-GLAXOSMITHKLINE-PL2020GSK021130

PATIENT
  Age: 65 Year
  Sex: Female

DRUGS (7)
  1. CEFUROXIME. [Suspect]
     Active Substance: CEFUROXIME
     Indication: PRODUCT USED FOR UNKNOWN INDICATION
     Dosage: 250 MG
     Route: 048
     Dates: start: 201803
  2. ADRENALINE [Concomitant]
     Active Substance: EPINEPHRINE
     Indication: ANAPHYLACTIC SHOCK
     Dosage: 0.3 MG
     Route: 030
  3. CEFUROXIME AXETIL. [Suspect]
     Active Substance: CEFUROXIME AXETIL
     Indication: PRODUCT USED FOR UNKNOWN INDICATION
     Dosage: 5 DROPS
     Route: 048
  4. TAMOL [Concomitant]
     Active Substance: ACETAMINOPHEN
     Indication: ANAPHYLACTIC SHOCK
     Dosage: 5 MG
     Route: 055
  5. DEXAMETHASONE. [Concomitant]
     Active Substance: DEXAMETHASONE
     Indication: ANAPHYLACTIC SHOCK
     Dosage: 8 MG
     Route: 042
  6. OXYGEN THERAPY [Concomitant]
     Active Substance: OXYGEN
     Indication: ANAPHYLACTIC REACTION
     Dosage: UNK
  7. CEFAZOLIN [Concomitant]
     Active Substance: CEFAZOLIN
     Indication: ALLERGY TEST
     Dosage: UNK
     Route: 023

REACTIONS (12)
  - Flushing [Recovered/Resolved]
  - Drug hypersensitivity [Recovered/Resolved]
  - Anaphylactic reaction [Recovered/Resolved]
  - Therapeutic product cross-reactivity [Unknown]
  - Abdominal pain [Recovered/Resolved]
  - Anal incontinence [Recovered/Resolved]
  - Prescription drug used without a prescription [Unknown]
  - Dyspnoea [Recovered/Resolved]
  - Anaphylactic shock [Unknown]
  - Lactation disorder [Unknown]
  - Accidental exposure to product [Unknown]
  - Tachycardia [Recovered/Resolved]
